FAERS Safety Report 26087680 (Version 1)
Quarter: 2025Q4

REPORT INFORMATION
  Report Type: Spontaneous
  Country: US (occurrence: None)
  Receive Date: 20251125
  Receipt Date: 20251125
  Transmission Date: 20260117
  Serious: Yes (Other)
  Sender: FDA-CTU
  Company Number: None

PATIENT
  Age: 49 Year
  Sex: Male
  Weight: 67.5 kg

DRUGS (1)
  1. SUBLOCADE [Suspect]
     Active Substance: BUPRENORPHINE
     Indication: Drug use disorder
     Dosage: OTHER FREQUENCY : MONTHLY;?
     Route: 003
     Dates: start: 20250512, end: 20251013

REACTIONS (2)
  - Injection site pain [None]
  - Injection site ulcer [None]

NARRATIVE: CASE EVENT DATE: 20251023
